FAERS Safety Report 22087640 (Version 1)
Quarter: 2023Q1

REPORT INFORMATION
  Report Type: Spontaneous
  Country: MX (occurrence: MX)
  Receive Date: 20230313
  Receipt Date: 20230313
  Transmission Date: 20230418
  Serious: Yes (Other)
  Sender: FDA-Public Use
  Company Number: MX-TOLMAR, INC.-23MX039318

PATIENT
  Age: 90 Year
  Sex: Male

DRUGS (1)
  1. ELIGARD [Suspect]
     Active Substance: LEUPROLIDE ACETATE
     Indication: Prostate cancer
     Dosage: 22.5 MILLIGRAM, Q 6 MONTH

REACTIONS (5)
  - Dementia Alzheimer^s type [Not Recovered/Not Resolved]
  - Mood swings [Unknown]
  - Off label use [Unknown]
  - Hot flush [Unknown]
  - Fatigue [Not Recovered/Not Resolved]
